FAERS Safety Report 9216305 (Version 2)
Quarter: 2014Q1

REPORT INFORMATION
  Report Type: Spontaneous
  Country: MX (occurrence: MX)
  Receive Date: 20130408
  Receipt Date: 20140227
  Transmission Date: 20141002
  Serious: Yes (Death, Hospitalization, Other)
  Sender: FDA-Public Use
  Company Number: PHHY2013MX033390

PATIENT
  Age: 78 Year
  Sex: Male

DRUGS (1)
  1. RASILEZ HCT [Suspect]
     Indication: HYPERTENSION
     Dosage: 1 DF (300/12.5 MG), DIALY
     Route: 048

REACTIONS (5)
  - Respiratory arrest [Fatal]
  - Malaise [Unknown]
  - Disorientation [Unknown]
  - Cerebrovascular accident [Recovered/Resolved]
  - Memory impairment [Not Recovered/Not Resolved]
